FAERS Safety Report 19054474 (Version 1)
Quarter: 2021Q1

REPORT INFORMATION
  Report Type: Report from Study
  Country: CA (occurrence: CA)
  Receive Date: 20210325
  Receipt Date: 20210325
  Transmission Date: 20210420
  Serious: Yes (Other)
  Sender: FDA-Public Use
  Company Number: CA-JNJFOC-20210341680

PATIENT
  Age: 16 Year
  Sex: Female

DRUGS (1)
  1. REMICADE [Suspect]
     Active Substance: INFLIXIMAB
     Indication: CROHN^S DISEASE
     Route: 042

REACTIONS (6)
  - Flushing [Recovered/Resolved]
  - Infusion related reaction [Recovered/Resolved]
  - Malaise [Not Recovered/Not Resolved]
  - Nausea [Recovered/Resolved]
  - Drug ineffective [Unknown]
  - Dizziness [Recovered/Resolved]

NARRATIVE: CASE EVENT DATE: 20210319
